FAERS Safety Report 13817874 (Version 1)
Quarter: 2017Q3

REPORT INFORMATION
  Report Type: Spontaneous
  Country: US (occurrence: US)
  Receive Date: 20170731
  Receipt Date: 20170731
  Transmission Date: 20171127
  Serious: No
  Sender: FDA-Public Use
  Company Number: US-ROCHE-719351

PATIENT
  Sex: Female
  Weight: 59 kg

DRUGS (1)
  1. BONIVA [Suspect]
     Active Substance: IBANDRONATE SODIUM
     Indication: OSTEOPOROSIS
     Dosage: DOSE TAKEN: 17 DOSES
     Route: 065

REACTIONS (3)
  - Syringe issue [Unknown]
  - Incorrect dose administered [Unknown]
  - No adverse event [Unknown]
